FAERS Safety Report 11293556 (Version 1)
Quarter: 2015Q3

REPORT INFORMATION
  Report Type: Spontaneous
  Country: US (occurrence: US)
  Receive Date: 20150722
  Receipt Date: 20150722
  Transmission Date: 20151125
  Serious: Yes (Other)
  Sender: FDA-Public Use
  Company Number: US-TEVA-548602USA

PATIENT
  Sex: Female

DRUGS (4)
  1. NEFAZODONE [Suspect]
     Active Substance: NEFAZODONE
     Indication: DEPRESSION
     Dates: start: 2007
  2. ADCIRCA [Suspect]
     Active Substance: TADALAFIL
     Indication: CARDIAC DISORDER
     Dosage: 2 IN AM
     Route: 065
  3. ZANTAC [Concomitant]
     Active Substance: RANITIDINE HYDROCHLORIDE
     Route: 065
  4. LETARIS [Concomitant]
     Active Substance: AMBRISENTAN
     Dosage: 5 MILLIGRAM DAILY;
     Route: 065

REACTIONS (2)
  - Oesophageal candidiasis [Unknown]
  - Oral candidiasis [Unknown]
